FAERS Safety Report 5986744-9 (Version None)
Quarter: 2008Q4

REPORT INFORMATION
  Report Type: 
  Country: None (occurrence: None)
  Receive Date: 20081203
  Receipt Date: 20081121
  Transmission Date: 20090506
  Serious: Yes (Death, Life-Threatening)
  Sender: FDA-Public Use
  Company Number: 2008JP005352

PATIENT
  Age: 6 Month
  Sex: Female
  Weight: 4.5 kg

DRUGS (24)
  1. PROGRAF [Suspect]
     Indication: CORD BLOOD TRANSPLANT THERAPY
     Dosage: SEE IMAGE
     Route: 041
     Dates: start: 20080207, end: 20080208
  2. PROGRAF [Suspect]
     Indication: CORD BLOOD TRANSPLANT THERAPY
     Dosage: SEE IMAGE
     Route: 041
     Dates: start: 20080210, end: 20080210
  3. PROGRAF [Suspect]
     Indication: CORD BLOOD TRANSPLANT THERAPY
     Dosage: SEE IMAGE
     Route: 041
     Dates: start: 20080211, end: 20080212
  4. PROGRAF [Suspect]
     Indication: CORD BLOOD TRANSPLANT THERAPY
     Dosage: SEE IMAGE
     Route: 041
     Dates: start: 20080213, end: 20080221
  5. PROGRAF [Suspect]
     Indication: CORD BLOOD TRANSPLANT THERAPY
     Dosage: SEE IMAGE
     Route: 041
     Dates: start: 20080222, end: 20080224
  6. PROGRAF [Suspect]
     Indication: CORD BLOOD TRANSPLANT THERAPY
     Dosage: SEE IMAGE
     Route: 041
     Dates: start: 20080225, end: 20080304
  7. PROGRAF [Suspect]
     Indication: CORD BLOOD TRANSPLANT THERAPY
     Dosage: SEE IMAGE
     Route: 041
     Dates: start: 20080305, end: 20080305
  8. METHOTREXATE [Suspect]
     Indication: CORD BLOOD TRANSPLANT THERAPY
     Dosage: 2.6 MG, UID/QD, IV NOS; 1.8 MG, UID/QD, IV NOS
     Route: 042
     Dates: start: 20080209, end: 20080209
  9. METHOTREXATE [Suspect]
     Indication: CORD BLOOD TRANSPLANT THERAPY
     Dosage: 2.6 MG, UID/QD, IV NOS; 1.8 MG, UID/QD, IV NOS
     Route: 042
     Dates: start: 20080211, end: 20080211
  10. METHOTREXATE [Suspect]
     Indication: CORD BLOOD TRANSPLANT THERAPY
     Dosage: 2.6 MG, UID/QD, IV NOS; 1.8 MG, UID/QD, IV NOS
     Route: 042
     Dates: start: 20080214, end: 20080214
  11. SOLU-CORTEF [Suspect]
     Dosage: 1.25 MG, BID, IV NOS
     Route: 042
     Dates: start: 20080209, end: 20080209
  12. PREDNISOLONE [Suspect]
     Dosage: 5 MG, BID, IV DRIP
     Route: 041
     Dates: start: 20080221, end: 20080308
  13. FLUDARABINE PHOSPHATE [Concomitant]
  14. L-PAM (MELPHALAN) [Concomitant]
  15. ALKERAN [Concomitant]
  16. PIPERACILLIN [Concomitant]
  17. FUNGUARD (MICAFUNGIN) INJECTION [Concomitant]
  18. NEUPOGEN [Concomitant]
  19. ZOVIRAX [Concomitant]
  20. CARBENIN (BETAMIPRON, PANIPENEM) INJECTION [Concomitant]
  21. TAZOCIN (PIPERACILLIN SODIUM, TAZOBACTAM SODIUM) INJECTION [Concomitant]
  22. AMIKACIN [Concomitant]
  23. SOLU-MEDROL [Concomitant]
  24. POLYGLOBIN (IMMUNOGLOBULIN) INJECTION [Concomitant]

REACTIONS (4)
  - LEUKAEMIA [None]
  - NEUTROPHIL COUNT INCREASED [None]
  - RESPIRATORY FAILURE [None]
  - RESPIRATORY SYNCYTIAL VIRUS INFECTION [None]
